FAERS Safety Report 14653285 (Version 3)
Quarter: 2018Q2

REPORT INFORMATION
  Report Type: Report from Study
  Country: None (occurrence: FR)
  Receive Date: 20180319
  Receipt Date: 20180411
  Transmission Date: 20180711
  Serious: Yes (Hospitalization, Other)
  Sender: FDA-Public Use
  Company Number: FR-ABBVIE-18K-056-2288650-00

PATIENT
  Age: 44 Year
  Sex: Male
  Weight: 67 kg

DRUGS (6)
  1. AMOXICILLIN. [Concomitant]
     Active Substance: AMOXICILLIN
     Indication: TOOTH ABSCESS
     Route: 048
     Dates: start: 20180223, end: 20180228
  2. HUMIRA [Suspect]
     Active Substance: ADALIMUMAB
     Indication: CROHN^S DISEASE
     Dosage: WEEK 0 INDUCTION
     Route: 058
     Dates: start: 20180226, end: 20180226
  3. HUMIRA [Suspect]
     Active Substance: ADALIMUMAB
     Dosage: WEEK 4
     Route: 058
     Dates: start: 201803, end: 201803
  4. HUMIRA [Suspect]
     Active Substance: ADALIMUMAB
     Route: 058
     Dates: start: 20180403
  5. SOLUPRED (PREDNISOLONE) [Concomitant]
     Active Substance: PREDNISOLONE
     Indication: CROHN^S DISEASE
     Route: 048
     Dates: start: 20180216, end: 20180301
  6. HUMIRA [Suspect]
     Active Substance: ADALIMUMAB
     Dosage: WEEK 2, 2ND INJECTION
     Route: 058
     Dates: start: 20180319, end: 201803

REACTIONS (11)
  - Headache [Unknown]
  - Pain [Recovered/Resolved]
  - Hypersomnia [Unknown]
  - Cholangitis [Recovered/Resolved]
  - Cholecystitis [Recovered/Resolved]
  - Cholelithiasis [Recovering/Resolving]
  - Weight decreased [Recovering/Resolving]
  - Procedural pain [Unknown]
  - Hepatic necrosis [Unknown]
  - Yellow skin [Unknown]
  - Vomiting [Unknown]

NARRATIVE: CASE EVENT DATE: 2018
